FAERS Safety Report 5536807-7 (Version None)
Quarter: 2007Q4

REPORT INFORMATION
  Report Type: 
  Country: None (occurrence: None)
  Receive Date: 20071204
  Receipt Date: 20071120
  Transmission Date: 20080405
  Serious: Yes (Hospitalization)
  Sender: FDA-Public Use
  Company Number: RENA-12349

PATIENT
  Age: 32 Year
  Sex: Female
  Weight: 69 kg

DRUGS (13)
  1. RENAGEL [Suspect]
     Indication: HYPERPHOSPHATAEMIA
     Dosage: 0.5 G TID PO
     Route: 048
     Dates: start: 20060117
  2. CALTAN (CALCIUM CARBONATE) [Suspect]
     Indication: DRUG USE FOR UNKNOWN INDICATION
  3. KALIMATE. MFR: NIKKEN CHEMICALS CO., LTD [Suspect]
     Indication: DRUG USE FOR UNKNOWN INDICATION
  4. ADALAT [Concomitant]
  5. DIOVAN [Concomitant]
  6. LASIX [Concomitant]
  7. PRIMPERAN INJ [Concomitant]
  8. ALLOID G [Concomitant]
  9. ACINON [Concomitant]
  10. GASLON [Concomitant]
  11. MEVALOTIN [Concomitant]
  12. DIAZEPAM [Concomitant]
  13. HALCION [Concomitant]

REACTIONS (5)
  - BACK PAIN [None]
  - CONDITION AGGRAVATED [None]
  - CONSTIPATION [None]
  - CONVERSION DISORDER [None]
  - VOMITING [None]
